FAERS Safety Report 21728075 (Version 1)
Quarter: 2022Q4

REPORT INFORMATION
  Report Type: Spontaneous
  Country: CN (occurrence: CN)
  Receive Date: 20221214
  Receipt Date: 20221214
  Transmission Date: 20230113
  Serious: Yes (Death, Other)
  Sender: FDA-Public Use
  Company Number: CN-JNJFOC-20221200450

PATIENT

DRUGS (1)
  1. IMBRUVICA [Suspect]
     Active Substance: IBRUTINIB
     Indication: Chronic lymphocytic leukaemia
     Route: 048

REACTIONS (40)
  - Cardiac arrest [Fatal]
  - Cerebral aspergillosis [Unknown]
  - Nail cuticle fissure [Unknown]
  - Atrial fibrillation [Fatal]
  - Capillary fragility [Unknown]
  - Pleural effusion [Fatal]
  - Thrombocytopenia [Fatal]
  - Pyrexia [Fatal]
  - Diarrhoea [Fatal]
  - Mastoid effusion [Unknown]
  - Full blood count abnormal [Unknown]
  - Haemorrhage [Fatal]
  - Infection [Fatal]
  - Respiratory failure [Fatal]
  - Asthenia [Fatal]
  - Fatigue [Fatal]
  - Prostatic specific antigen decreased [Unknown]
  - Blood blister [Unknown]
  - Pseudohyperkalaemia [Unknown]
  - Scrotal haematocoele [Unknown]
  - Nail growth abnormal [Unknown]
  - Nail bed bleeding [Unknown]
  - Anaemia [Fatal]
  - Immunoglobulins abnormal [Unknown]
  - Septic shock [Fatal]
  - Cardiac failure [Fatal]
  - Sepsis [Fatal]
  - Renal cyst haemorrhage [Unknown]
  - Pneumonia [Fatal]
  - Blood iron abnormal [Unknown]
  - Platelet count decreased [Fatal]
  - Dyschezia [Unknown]
  - Skin mass [Unknown]
  - Ear neoplasm [Unknown]
  - Fall [Fatal]
  - Myocardial infarction [Fatal]
  - Ear haemorrhage [Unknown]
  - Prostatic mass [Unknown]
  - Hair texture abnormal [Unknown]
  - Dyspnoea [Fatal]
